FAERS Safety Report 20720990 (Version 1)
Quarter: 2022Q2

REPORT INFORMATION
  Report Type: Spontaneous
  Country: US (occurrence: None)
  Receive Date: 20220415
  Receipt Date: 20220415
  Transmission Date: 20220721
  Serious: Yes (Life-Threatening)
  Sender: FDA-Public Use
  Company Number: None

PATIENT
  Age: 35 Year
  Sex: Male

DRUGS (2)
  1. SUGAMMADEX [Suspect]
     Active Substance: SUGAMMADEX
     Route: 040
  2. ROCURONIUM [Concomitant]
     Active Substance: ROCURONIUM BROMIDE
     Dates: start: 20220127

REACTIONS (8)
  - Muscle twitching [None]
  - Mental status changes [None]
  - Oxygen saturation decreased [None]
  - Hypercapnia [None]
  - Asthenia [None]
  - Cognitive disorder [None]
  - Recurrence of neuromuscular blockade [None]
  - Blood pH decreased [None]

NARRATIVE: CASE EVENT DATE: 20220127
